FAERS Safety Report 18282965 (Version 1)
Quarter: 2020Q3

REPORT INFORMATION
  Report Type: Spontaneous
  Country: DE (occurrence: DE)
  Receive Date: 20200918
  Receipt Date: 20200918
  Transmission Date: 20201103
  Serious: Yes (Death)
  Sender: FDA-Public Use
  Company Number: DE-PFIZER INC-2020361075

PATIENT
  Sex: Male

DRUGS (1)
  1. LORVIQUA [Suspect]
     Active Substance: LORLATINIB
     Indication: NON-SMALL CELL LUNG CANCER METASTATIC
     Dosage: ONLY A FEW MONTHS OF THERAPY

REACTIONS (3)
  - Oedema peripheral [Unknown]
  - Blood cholesterol increased [Unknown]
  - Death [Fatal]
